FAERS Safety Report 11804071 (Version 1)
Quarter: 2015Q4

REPORT INFORMATION
  Report Type: Spontaneous
  Country: US (occurrence: US)
  Receive Date: 20151204
  Receipt Date: 20151204
  Transmission Date: 20160305
  Serious: No
  Sender: FDA-Public Use
  Company Number: US-GLAXOSMITHKLINE-US2015171921

PATIENT
  Sex: Female

DRUGS (2)
  1. TARGET NICOTINE [Suspect]
     Active Substance: NICOTINE
     Indication: PRODUCT USED FOR UNKNOWN INDICATION
     Dosage: UNK
  2. TARGET NICOTINE [Suspect]
     Active Substance: NICOTINE
     Indication: PRODUCT USED FOR UNKNOWN INDICATION
     Dosage: 2 MG, UNK

REACTIONS (9)
  - Oral pain [Recovered/Resolved]
  - Malaise [Recovered/Resolved]
  - Dental caries [Not Recovered/Not Resolved]
  - Toothache [Recovered/Resolved]
  - Nicotine dependence [Not Recovered/Not Resolved]
  - Incorrect drug administration duration [Unknown]
  - Tooth disorder [Recovered/Resolved]
  - Dyspepsia [Recovered/Resolved]
  - Mouth ulceration [Recovered/Resolved]
